FAERS Safety Report 24593943 (Version 3)
Quarter: 2025Q1

REPORT INFORMATION
  Report Type: Spontaneous
  Country: AR (occurrence: AR)
  Receive Date: 20241108
  Receipt Date: 20250204
  Transmission Date: 20250409
  Serious: No
  Sender: PFIZER
  Company Number: AR-PFIZER INC-202400292601

PATIENT
  Sex: Female

DRUGS (1)
  1. ABRILADA [Suspect]
     Active Substance: ADALIMUMAB-AFZB
     Dates: start: 2022

REACTIONS (1)
  - Device defective [Unknown]
